FAERS Safety Report 7944189-6 (Version None)
Quarter: 2011Q4

REPORT INFORMATION
  Report Type: 
  Country: None (occurrence: None)
  Receive Date: 20111129
  Receipt Date: 20111116
  Transmission Date: 20120403
  Serious: Yes (Hospitalization)
  Sender: FDA-Public Use
  Company Number: US-BIOGENIDEC-2011BI043384

PATIENT
  Age: 56 Year
  Sex: Female

DRUGS (2)
  1. TOPROL-XL [Concomitant]
     Indication: HYPERTENSION
  2. TYSABRI [Suspect]
     Indication: MULTIPLE SCLEROSIS
     Route: 042
     Dates: start: 20080508

REACTIONS (3)
  - COLON GANGRENE [None]
  - GALLBLADDER FISTULA [None]
  - CHOLELITHIASIS [None]
